FAERS Safety Report 14950221 (Version 1)
Quarter: 2018Q2

REPORT INFORMATION
  Report Type: Report from Study
  Country: JP (occurrence: JP)
  Receive Date: 20180530
  Receipt Date: 20180530
  Transmission Date: 20180711
  Serious: Yes (Other)
  Sender: FDA-Public Use
  Company Number: JP-ACCORD-048511

PATIENT

DRUGS (3)
  1. FOLINIC ACID [Suspect]
     Active Substance: LEUCOVORIN
     Indication: GASTRIC CANCER
     Dosage: ON DAYS 1, 8, AND 15.?PERFORMED IN 4 WEEKS WITH REGIMEN OF 1 COURSE
  2. FLUOROURACIL. [Suspect]
     Active Substance: FLUOROURACIL
     Indication: GASTRIC CANCER
     Dosage: ON DAYS 1, 8, AND 15?PERFORMED IN 4 WEEKS WITH REGIMEN OF 1 COURSE
  3. PACLITAXEL/PACLITAXEL LIPOSOME [Suspect]
     Active Substance: PACLITAXEL
     Indication: GASTRIC CANCER
     Dosage: ON DAYS 1, 8, AND 15.?PERFORMED IN 4 WEEKS WITH REGIMEN OF 1 COURSE

REACTIONS (4)
  - Tumour haemorrhage [None]
  - Gastrointestinal haemorrhage [Unknown]
  - Gastric cancer [None]
  - Malignant neoplasm progression [None]
